FAERS Safety Report 10475029 (Version 4)
Quarter: 2014Q4

REPORT INFORMATION
  Report Type: Report from Study
  Country: CA (occurrence: CA)
  Receive Date: 20140925
  Receipt Date: 20141007
  Transmission Date: 20150528
  Serious: Yes (Other)
  Sender: FDA-Public Use
  Company Number: CA-ROCHE-1458936

PATIENT
  Age: 63 Year
  Sex: Male

DRUGS (10)
  1. PREDNISONE. [Concomitant]
     Active Substance: PREDNISONE
  2. DIPHENHYDRAMINE HCL [Concomitant]
     Active Substance: DIPHENHYDRAMINE HYDROCHLORIDE
     Route: 048
     Dates: start: 20140904
  3. METHYLPREDNISOLONE. [Concomitant]
     Active Substance: METHYLPREDNISOLONE
     Route: 042
     Dates: start: 20140904
  4. RITUXAN [Suspect]
     Active Substance: RITUXIMAB
     Indication: CHRONIC LYMPHOCYTIC LEUKAEMIA
     Route: 042
     Dates: start: 20140904
  5. FOLIC ACID. [Concomitant]
     Active Substance: FOLIC ACID
  6. VIAGRA [Concomitant]
     Active Substance: SILDENAFIL CITRATE
  7. RANITIDINE [Suspect]
     Active Substance: RANITIDINE\RANITIDINE HYDROCHLORIDE
     Indication: PRODUCT USED FOR UNKNOWN INDICATION
     Route: 065
  8. ACETAMINOPHEN. [Concomitant]
     Active Substance: ACETAMINOPHEN
     Route: 048
     Dates: start: 20140904
  9. PANTOLOC [Suspect]
     Active Substance: PANTOPRAZOLE SODIUM
     Indication: PRODUCT USED FOR UNKNOWN INDICATION
     Route: 065
  10. PANTOLOC [Concomitant]
     Active Substance: PANTOPRAZOLE SODIUM

REACTIONS (11)
  - Heart rate increased [Not Recovered/Not Resolved]
  - Jaundice [Unknown]
  - Haemolysis [Unknown]
  - Serum ferritin increased [Unknown]
  - Haemoglobin decreased [Unknown]
  - Blood pressure abnormal [Unknown]
  - Hypoaesthesia oral [Recovered/Resolved]
  - Blood pressure increased [Not Recovered/Not Resolved]
  - Infusion related reaction [Unknown]
  - Renal impairment [Unknown]
  - Tremor [Unknown]

NARRATIVE: CASE EVENT DATE: 20140904
